FAERS Safety Report 7827642-5 (Version None)
Quarter: 2011Q4

REPORT INFORMATION
  Report Type: 
  Country: None (occurrence: None)
  Receive Date: 20111020
  Receipt Date: 20111011
  Transmission Date: 20120403
  Serious: Yes (Congenital Anomaly, Other)
  Sender: FDA-Public Use
  Company Number: PHNU2006AU01590

PATIENT
  Sex: Male

DRUGS (1)
  1. CLOZARIL [Suspect]
     Dosage: 500 MG
     Route: 064
     Dates: start: 20050223, end: 20061128

REACTIONS (3)
  - GASTROOESOPHAGEAL REFLUX DISEASE [None]
  - ASPERGER'S DISORDER [None]
  - MATERNAL EXPOSURE DURING PREGNANCY [None]
